FAERS Safety Report 18511959 (Version 1)
Quarter: 2020Q4

REPORT INFORMATION
  Report Type: Report from Study
  Country: FR (occurrence: FR)
  Receive Date: 20201117
  Receipt Date: 20201117
  Transmission Date: 20210114
  Serious: Yes (Hospitalization)
  Sender: FDA-Public Use
  Company Number: FR-TAKEDA-FR202024560

PATIENT

DRUGS (2)
  1. IDURSULFASE [Suspect]
     Active Substance: IDURSULFASE
     Indication: MUCOPOLYSACCHARIDOSIS II
     Dosage: .2 MILLIGRAM/KILOGRAM, 1/WEEK
     Route: 042
     Dates: start: 20080101
  2. IDURSULFASE [Suspect]
     Active Substance: IDURSULFASE
     Dosage: 0.4 MILLIGRAM/KILOGRAM
     Route: 042
     Dates: start: 20111104

REACTIONS (1)
  - Device breakage [Recovered/Resolved]

NARRATIVE: CASE EVENT DATE: 20141224
